FAERS Safety Report 16669832 (Version 1)
Quarter: 2019Q3

REPORT INFORMATION
  Report Type: Spontaneous
  Country: US (occurrence: US)
  Receive Date: 20190620
  Receipt Date: 20190620
  Transmission Date: 20191004
  Serious: No
  Sender: FDA-Public Use
  Company Number: None

PATIENT
  Age: 58 Year
  Sex: Female

DRUGS (20)
  1. NORVASC [Concomitant]
     Active Substance: AMLODIPINE BESYLATE
  2. LISINOPRIL. [Suspect]
     Active Substance: LISINOPRIL
  3. PROTONIX [Concomitant]
     Active Substance: PANTOPRAZOLE SODIUM
  4. MVI [Concomitant]
     Active Substance: VITAMINS
  5. HYDROXYGENE [Concomitant]
  6. SENOQUAL [Concomitant]
  7. STELAVIN [Concomitant]
  8. INDURAL [Concomitant]
  9. RANEXA [Concomitant]
     Active Substance: RANOLAZINE
  10. CLARITIN [Concomitant]
     Active Substance: LORATADINE
  11. PHENERAGIAN [Concomitant]
  12. MELATONIN [Concomitant]
     Active Substance: MELATONIN
  13. PERCOCAT [Concomitant]
  14. AJOVY [Suspect]
     Active Substance: FREMANEZUMAB-VFRM
     Route: 058
     Dates: start: 201812, end: 201905
  15. ASPIRIN. [Suspect]
     Active Substance: ASPIRIN
  16. LIPITOR [Suspect]
     Active Substance: ATORVASTATIN CALCIUM
  17. TOPAMAX [Concomitant]
     Active Substance: TOPIRAMATE
  18. BENADRYL ALLERGY [Concomitant]
     Active Substance: DIPHENHYDRAMINE HYDROCHLORIDE
  19. SLNTG [Concomitant]
  20. NASACORT [Concomitant]
     Active Substance: TRIAMCINOLONE ACETONIDE

REACTIONS (1)
  - Drug ineffective [None]

NARRATIVE: CASE EVENT DATE: 20190606
